FAERS Safety Report 12299627 (Version 1)
Quarter: 2016Q2

REPORT INFORMATION
  Report Type: Spontaneous
  Country: US (occurrence: US)
  Receive Date: 20160425
  Receipt Date: 20160425
  Transmission Date: 20160815
  Serious: No
  Sender: FDA-Public Use
  Company Number: US-PFIZER INC-2016226821

PATIENT
  Age: 48 Year
  Sex: Female
  Weight: 101.6 kg

DRUGS (5)
  1. LYRICA [Suspect]
     Active Substance: PREGABALIN
     Indication: ASTHENIA
  2. LYRICA [Suspect]
     Active Substance: PREGABALIN
     Indication: PAIN
     Dosage: 150 MG, 2X/DAY (150 MG CAPSULES, BY MOUTH, 2 TIMES PER DAY)
     Route: 048
  3. BUSPIRONE [Suspect]
     Active Substance: BUSPIRONE HYDROCHLORIDE
     Indication: ANXIETY
     Dosage: 0.5 DF, 2X/DAY (15 MG BAR, BREAK BAR IN HALF TO THIRDS, HALF TALBLET TWICE PER DAYMORNING AND NIGHT)
  4. LYRICA [Suspect]
     Active Substance: PREGABALIN
     Indication: NEURALGIA
  5. LAMICTAL [Suspect]
     Active Substance: LAMOTRIGINE
     Indication: MENTAL DISORDER
     Dosage: 100 MG, UNK

REACTIONS (2)
  - Drug ineffective [Unknown]
  - Weight loss poor [Not Recovered/Not Resolved]

NARRATIVE: CASE EVENT DATE: 2012
